FAERS Safety Report 7237160-3 (Version None)
Quarter: 2011Q1

REPORT INFORMATION
  Report Type: 
  Country: None (occurrence: None)
  Receive Date: 20110121
  Receipt Date: 20110107
  Transmission Date: 20110831
  Serious: Yes (Other)
  Sender: FDA-Public Use
  Company Number: IT-RANBAXY-2011RR-41062

PATIENT
  Age: 45 Year
  Sex: Female

DRUGS (3)
  1. LEVETIRACETAM [Concomitant]
     Indication: CONVULSION
  2. LAMOTRIGINE [Suspect]
     Indication: COMPLEX PARTIAL SEIZURES
     Dosage: 100 MG, BID
  3. PHENOBARBITAL [Suspect]
     Indication: COMPLEX PARTIAL SEIZURES
     Dosage: 100 MG, UNK

REACTIONS (3)
  - LEUKOPENIA [None]
  - DRUG INTERACTION [None]
  - THROMBOCYTOPENIA [None]
